FAERS Safety Report 19325414 (Version 1)
Quarter: 2021Q2

REPORT INFORMATION
  Report Type: Spontaneous
  Country: US (occurrence: US)
  Receive Date: 20210528
  Receipt Date: 20210528
  Transmission Date: 20210717
  Serious: Yes (Hospitalization, Other)
  Sender: FDA-Public Use
  Company Number: US-LUPIN PHARMACEUTICALS INC.-2021-08141

PATIENT
  Sex: Female

DRUGS (31)
  1. MORPHINE [Suspect]
     Active Substance: MORPHINE
     Indication: PAIN
     Dosage: RECEIVED TOTAL DOSE OF 1349 MG FOR 8 DAYS
     Route: 048
  2. MORPHINE [Suspect]
     Active Substance: MORPHINE
     Indication: NEURALGIA
     Dosage: RECEIVED TOTAL DOSE OF 1000MG FOR 7 DAYS DURING CYCLE 3
     Route: 048
  3. IRINOTECAN [Concomitant]
     Active Substance: IRINOTECAN
     Dosage: 50 MILLIGRAM/SQ. METER, QD,CYCLE 3
     Route: 042
     Dates: start: 20190604, end: 20190608
  4. ETOPOSIDE. [Concomitant]
     Active Substance: ETOPOSIDE
     Indication: NEUROBLASTOMA
     Dosage: RECEIVED 1 CYCLE
     Route: 065
  5. METOCLOPRAMIDE. [Concomitant]
     Active Substance: METOCLOPRAMIDE
     Indication: NAUSEA
     Dosage: UNK
     Route: 065
  6. GABAPENTIN. [Suspect]
     Active Substance: GABAPENTIN
     Indication: PAIN
     Dosage: UNK
     Route: 065
  7. DIPHENHYDRAMINE. [Suspect]
     Active Substance: DIPHENHYDRAMINE
     Indication: PRURITUS
     Dosage: UNK
     Route: 065
  8. TEMOZOLOMIDE. [Concomitant]
     Active Substance: TEMOZOLOMIDE
     Dosage: 100 MILLIGRAM/SQ. METER, QD,CYCLE 2
     Route: 048
     Dates: start: 20190506, end: 20190510
  9. HYDROMORPHONE [Suspect]
     Active Substance: HYDROMORPHONE
     Indication: NEURALGIA
     Dosage: UNK
     Route: 042
  10. METHADONE [Suspect]
     Active Substance: METHADONE HYDROCHLORIDE
     Indication: NEURALGIA
  11. IRINOTECAN [Concomitant]
     Active Substance: IRINOTECAN
     Dosage: 50 MILLIGRAM/SQ. METER, QD
     Route: 042
     Dates: start: 20190722
  12. ACETAMINOPHEN. [Concomitant]
     Active Substance: ACETAMINOPHEN
     Indication: PYREXIA
     Dosage: UNK
     Route: 065
  13. ATROPINE. [Concomitant]
     Active Substance: ATROPINE
     Indication: DIARRHOEA
     Dosage: UNK
     Route: 065
  14. TEMOZOLOMIDE. [Concomitant]
     Active Substance: TEMOZOLOMIDE
     Dosage: 100 MILLIGRAM/SQ. METER, QD,CYCLE 3
     Route: 048
     Dates: start: 20190604, end: 20190608
  15. OXYCODONE AND ACETAMINOPHEN [Suspect]
     Active Substance: ACETAMINOPHEN\OXYCODONE HYDROCHLORIDE
     Indication: PAIN
     Dosage: 5/325 MILLIGRAM, EVERY 4 HOUR
     Route: 048
  16. METHADONE [Suspect]
     Active Substance: METHADONE HYDROCHLORIDE
     Indication: PAIN
     Dosage: 2.5 MILLIGRAM, TID
     Route: 048
  17. DIPHENHYDRAMINE. [Suspect]
     Active Substance: DIPHENHYDRAMINE
     Indication: NEURALGIA
  18. DINUTUXIMAB [Concomitant]
     Active Substance: DINUTUXIMAB
     Dosage: 17.5 MILLIGRAM/SQ. METER, QD,CYCLE 3
     Route: 042
     Dates: start: 20190605, end: 20190608
  19. CISPLATIN. [Concomitant]
     Active Substance: CISPLATIN
     Indication: NEUROBLASTOMA
     Dosage: RECEIVED 1 CYCLE
     Route: 065
  20. ONDANSETRON [Concomitant]
     Active Substance: ONDANSETRON
     Indication: NAUSEA
     Dosage: UNK
     Route: 065
  21. GABAPENTIN. [Suspect]
     Active Substance: GABAPENTIN
     Indication: NEURALGIA
  22. HYDROMORPHONE [Suspect]
     Active Substance: HYDROMORPHONE
     Indication: PAIN
     Dosage: UNK
     Route: 042
  23. DIPHENHYDRAMINE. [Suspect]
     Active Substance: DIPHENHYDRAMINE
     Indication: PAIN
  24. IRINOTECAN [Concomitant]
     Active Substance: IRINOTECAN
     Indication: NEUROBLASTOMA
     Dosage: 50 MILLIGRAM/SQ. METER, QD
     Route: 042
     Dates: start: 20190416, end: 20190420
  25. DINUTUXIMAB [Concomitant]
     Active Substance: DINUTUXIMAB
     Indication: NEUROBLASTOMA
     Dosage: 17.5 MILLIGRAM/SQ. METER, QD,CYCLE 2
     Route: 042
     Dates: start: 20190507, end: 20190510
  26. TOPOTECAN [Concomitant]
     Active Substance: TOPOTECAN HYDROCHLORIDE
     Indication: NEUROBLASTOMA
     Dosage: RECEIVED 2 CYCLE
     Route: 065
  27. TEMOZOLOMIDE. [Concomitant]
     Active Substance: TEMOZOLOMIDE
     Dosage: 100 MILLIGRAM/SQ. METER, QD
     Route: 048
     Dates: start: 20190722
  28. OXYCODONE AND ACETAMINOPHEN [Suspect]
     Active Substance: ACETAMINOPHEN\OXYCODONE HYDROCHLORIDE
     Indication: NEURALGIA
  29. IRINOTECAN [Concomitant]
     Active Substance: IRINOTECAN
     Dosage: 50 MILLIGRAM/SQ. METER, QD,CYCLE 2
     Route: 042
     Dates: start: 20190506, end: 20190510
  30. CYCLOPHOSPHAMIDE. [Concomitant]
     Active Substance: CYCLOPHOSPHAMIDE
     Indication: NEUROBLASTOMA
     Dosage: RECEIVED 2 CYCLES
     Route: 065
  31. TEMOZOLOMIDE. [Concomitant]
     Active Substance: TEMOZOLOMIDE
     Indication: NEUROBLASTOMA
     Dosage: 100 MILLIGRAM/SQ. METER, QD,CYCLE 1
     Route: 048
     Dates: start: 20190416, end: 20190420

REACTIONS (5)
  - Sedation [Unknown]
  - Mental status changes [Unknown]
  - Respiratory depression [Unknown]
  - Confusional state [Unknown]
  - Constipation [Unknown]
